FAERS Safety Report 5966111-4 (Version None)
Quarter: 2008Q4

REPORT INFORMATION
  Report Type: 
  Country: None (occurrence: None)
  Receive Date: 20081119
  Receipt Date: 20080728
  Transmission Date: 20090506
  Serious: No
  Sender: FDA-Public Use
  Company Number: WAES 0807USA05345

PATIENT
  Age: 66 Year
  Sex: Female

DRUGS (3)
  1. JANUVIA [Suspect]
     Indication: DIABETES MELLITUS
     Dosage: 100 MG/DAILY/PO
     Route: 048
     Dates: start: 20070101
  2. HORMONES (UNSPECIFIED) [Concomitant]
  3. METFORMIN HCL [Concomitant]

REACTIONS (1)
  - RASH [None]
